FAERS Safety Report 16162329 (Version 1)
Quarter: 2019Q2

REPORT INFORMATION
  Report Type: Spontaneous
  Country: US (occurrence: US)
  Receive Date: 20190405
  Receipt Date: 20190405
  Transmission Date: 20190711
  Serious: Yes (Other)
  Sender: FDA-Public Use
  Company Number: US-HIKMA PHARMACEUTICALS USA INC.-US-H14001-19-01985

PATIENT
  Age: 66 Year
  Sex: Female

DRUGS (2)
  1. DEXAMETHASONE. [Suspect]
     Active Substance: DEXAMETHASONE
     Indication: RESPIRATORY DISTRESS
     Route: 042
  2. ALBUTEROL, IPRATROPIUM BROMIDE [Concomitant]
     Indication: RESPIRATORY DISTRESS
     Route: 045

REACTIONS (2)
  - Genital burning sensation [Unknown]
  - Tachycardia [Recovered/Resolved]
